FAERS Safety Report 10548315 (Version 1)
Quarter: 2014Q4

REPORT INFORMATION
  Report Type: Spontaneous
  Country: US (occurrence: None)
  Receive Date: 20141027
  Receipt Date: 20141027
  Transmission Date: 20150529
  Serious: Yes (Other)
  Sender: FDA-Public Use
  Company Number: None

PATIENT
  Age: 59 Year
  Sex: Female
  Weight: 69.85 kg

DRUGS (1)
  1. CIPRO [Suspect]
     Active Substance: CIPROFLOXACIN HYDROCHLORIDE
     Indication: URINARY TRACT INFECTION
     Dosage: 1 PILL TWICE DAILY TAKEN BY MOUTH
     Route: 048
     Dates: start: 20140324, end: 20140325

REACTIONS (8)
  - Abdominal distension [None]
  - Gait disturbance [None]
  - Flatulence [None]
  - Arthralgia [None]
  - Tendon pain [None]
  - Pain in extremity [None]
  - Skin disorder [None]
  - Dyspepsia [None]

NARRATIVE: CASE EVENT DATE: 20140324
